FAERS Safety Report 4551271-2 (Version None)
Quarter: 2005Q1

REPORT INFORMATION
  Report Type: 
  Country: None (occurrence: None)
  Receive Date: 20050110
  Receipt Date: 20041223
  Transmission Date: 20050727
  Serious: Yes (Life-Threatening)
  Sender: FDA-Public Use
  Company Number: 2004BL007897

PATIENT
  Age: 94 Year
  Sex: Female

DRUGS (4)
  1. MINIMS TROPICAMIDE                   (TROPICAMIDE) [Suspect]
     Indication: VITREOUS FLOATERS
     Dosage: 1 DROP; OPHTHALMIC
     Route: 047
     Dates: start: 20041106, end: 20041106
  2. DICLOFENAC [Concomitant]
  3. DEVIL'S CLAW [Concomitant]
  4. ARNICA EXTRACT [Concomitant]

REACTIONS (1)
  - ANAPHYLACTIC SHOCK [None]
